FAERS Safety Report 9978059 (Version 1)
Quarter: 2014Q1

REPORT INFORMATION
  Report Type: Spontaneous
  Country: US (occurrence: US)
  Receive Date: 20140306
  Receipt Date: 20140306
  Transmission Date: 20141002
  Serious: No
  Sender: FDA-Public Use
  Company Number: US-ABBVIE-13P-163-1059151-00

PATIENT
  Age: 22 Year
  Sex: Female
  Weight: 56.3 kg

DRUGS (2)
  1. LUPRON DEPOT [Suspect]
     Indication: ENDOMETRIOSIS
     Dates: start: 20120522, end: 20120522
  2. MIRENA [Concomitant]
     Indication: CONTRACEPTION

REACTIONS (1)
  - Feeling abnormal [Recovered/Resolved]
